FAERS Safety Report 6494361-X (Version None)
Quarter: 2009Q4

REPORT INFORMATION
  Report Type: 
  Country: None (occurrence: None)
  Receive Date: 20091214
  Receipt Date: 20090211
  Transmission Date: 20100525
  Serious: No
  Sender: FDA-Public Use
  Company Number: US-BRISTOL-MYERS SQUIBB COMPANY-14502660

PATIENT

DRUGS (2)
  1. ABILIFY [Suspect]
     Indication: DEPRESSION
  2. LEXAPRO [Suspect]
     Indication: DEPRESSION

REACTIONS (2)
  - FEELING ABNORMAL [None]
  - SUICIDAL IDEATION [None]
